FAERS Safety Report 7367328-7 (Version None)
Quarter: 2011Q1

REPORT INFORMATION
  Report Type: 
  Country: None (occurrence: None)
  Receive Date: 20110322
  Receipt Date: 20110309
  Transmission Date: 20110831
  Serious: Yes (Hospitalization, Other)
  Sender: FDA-Public Use
  Company Number: GB-PFIZER INC-2011061433

PATIENT
  Age: 79 Year
  Sex: Male

DRUGS (7)
  1. METFORMIN [Concomitant]
  2. OMEPRAZOLE [Concomitant]
  3. CODEINE [Concomitant]
  4. GABAPENTIN [Concomitant]
     Indication: ARTHRALGIA
  5. IBUPROFEN [Suspect]
     Indication: ARTHRALGIA
     Dosage: UNK
     Route: 048
     Dates: start: 20110204, end: 20110209
  6. AMLODIPINE [Concomitant]
  7. DICLOFENAC [Suspect]
     Dosage: 50/MG, 3XDAY
     Route: 048
     Dates: start: 20110101

REACTIONS (3)
  - DUODENAL ULCER [None]
  - GASTRITIS EROSIVE [None]
  - MELAENA [None]
